FAERS Safety Report 5352280-6 (Version None)
Quarter: 2007Q2

REPORT INFORMATION
  Report Type: 
  Country: None (occurrence: None)
  Receive Date: 20070611
  Receipt Date: 20070530
  Transmission Date: 20071010
  Serious: Yes (Other)
  Sender: FDA-Public Use
  Company Number: PHBS2007IN08996

PATIENT
  Age: 60 Year
  Sex: Female

DRUGS (4)
  1. IMATINIB MESYLATE [Suspect]
     Indication: CHRONIC MYELOID LEUKAEMIA
     Dosage: 200 MG/D
     Route: 065
  2. IMATINIB MESYLATE [Suspect]
     Dosage: 100 MG/D
     Route: 065
  3. IMATINIB MESYLATE [Suspect]
     Dosage: 300 MG/D
     Route: 065
  4. IMATINIB MESYLATE [Suspect]
     Dosage: 400 MG/D
     Route: 065

REACTIONS (8)
  - ACANTHOSIS [None]
  - LYMPHOCYTIC INFILTRATION [None]
  - MUCOSAL EROSION [None]
  - ORAL MUCOSAL DISORDER [None]
  - PARAKERATOSIS [None]
  - PERIORBITAL OEDEMA [None]
  - RASH MACULO-PAPULAR [None]
  - STEVENS-JOHNSON SYNDROME [None]
